FAERS Safety Report 4618093-5 (Version None)
Quarter: 2005Q1

REPORT INFORMATION
  Report Type: 
  Country: None (occurrence: None)
  Receive Date: 20050322
  Receipt Date: 20050228
  Transmission Date: 20050727
  Serious: Yes (Hospitalization, Other)
  Sender: FDA-Public Use
  Company Number: US_0406103792

PATIENT
  Age: 45 Year
  Sex: Female
  Weight: 66 kg

DRUGS (4)
  1. ZYPREXA [Suspect]
     Dosage: 10 MG DAY
     Dates: start: 20010312, end: 20030201
  2. DEPAKOTE [Concomitant]
  3. WELLBUTRIN [Concomitant]
  4. CELEXA [Concomitant]

REACTIONS (8)
  - CONVULSION [None]
  - DIABETES MELLITUS [None]
  - DIABETIC COMA [None]
  - HYPERGLYCAEMIA [None]
  - HYPOGLYCAEMIA [None]
  - KETOACIDOSIS [None]
  - MENTAL DISORDER [None]
  - VISION BLURRED [None]
